FAERS Safety Report 19841979 (Version 2)
Quarter: 2021Q4

REPORT INFORMATION
  Report Type: Spontaneous
  Country: ES (occurrence: ES)
  Receive Date: 20210915
  Receipt Date: 20211005
  Transmission Date: 20220303
  Serious: Yes (Death)
  Sender: FDA-Public Use
  Company Number: ES-GILEAD-2021-0548373

PATIENT
  Sex: Female

DRUGS (1)
  1. YESCARTA [Suspect]
     Active Substance: AXICABTAGENE CILOLEUCEL
     Indication: B-cell lymphoma refractory
     Dosage: UNK
     Route: 065
     Dates: start: 20210202, end: 20210202

REACTIONS (1)
  - Disease recurrence [Fatal]
